FAERS Safety Report 6537739-8 (Version None)
Quarter: 2010Q1

REPORT INFORMATION
  Report Type: 
  Country: None (occurrence: None)
  Receive Date: 20100112
  Receipt Date: 20100112
  Transmission Date: 20100710
  Serious: No
  Sender: FDA-Public Use
  Company Number: None

PATIENT
  Age: 69 Year
  Sex: Male
  Weight: 112.04 kg

DRUGS (1)
  1. TERAZOSIN HCL [Suspect]
     Indication: BENIGN PROSTATIC HYPERPLASIA
     Dosage: 5 MG HS EAR
     Route: 001
     Dates: start: 20050615, end: 20091124

REACTIONS (4)
  - FACIAL BONES FRACTURE [None]
  - FALL [None]
  - HYPOTENSION [None]
  - SYNCOPE [None]
